FAERS Safety Report 8564943-X (Version None)
Quarter: 2012Q3

REPORT INFORMATION
  Report Type: 
  Country: None (occurrence: None)
  Receive Date: 20120803
  Receipt Date: 20120801
  Transmission Date: 20120928
  Serious: No
  Sender: FDA-Public Use
  Company Number: US-PFIZER INC-2012187377

PATIENT
  Sex: Female
  Weight: 74.376 kg

DRUGS (4)
  1. METOPROLOL [Concomitant]
     Dosage: UNK
  2. LYRICA [Suspect]
     Indication: BACK PAIN
  3. LISINOPRIL [Concomitant]
     Dosage: UNK
  4. LYRICA [Suspect]
     Indication: PAIN IN EXTREMITY
     Dosage: 50 MG, 1X/DAY
     Route: 048
     Dates: end: 20120701

REACTIONS (1)
  - DRUG INEFFECTIVE [None]
